FAERS Safety Report 19179276 (Version 20)
Quarter: 2024Q2

REPORT INFORMATION
  Report Type: Report from Study
  Country: US (occurrence: US)
  Receive Date: 20210426
  Receipt Date: 20240607
  Transmission Date: 20240716
  Serious: Yes (Other)
  Sender: FDA-Public Use
  Company Number: US-TAKEDA-US202025194

PATIENT
  Age: 69 Year
  Sex: Female

DRUGS (4)
  1. HUMAN IMMUNOGLOBULIN G [Suspect]
     Active Substance: HUMAN IMMUNOGLOBULIN G
     Indication: Primary immunodeficiency syndrome
     Dosage: UNK
     Route: 042
  2. HUMAN IMMUNOGLOBULIN G [Suspect]
     Active Substance: HUMAN IMMUNOGLOBULIN G
     Indication: Selective IgG subclass deficiency
     Dosage: UNK
     Route: 058
  3. HUMAN IMMUNOGLOBULIN G [Suspect]
     Active Substance: HUMAN IMMUNOGLOBULIN G
     Dosage: 10 GRAM, 1/WEEK
     Route: 058
  4. PROLIA [Suspect]
     Active Substance: DENOSUMAB
     Indication: Product used for unknown indication
     Dosage: UNK
     Route: 050

REACTIONS (31)
  - Polyarthritis [Recovering/Resolving]
  - Rheumatoid arthritis [Unknown]
  - Autoimmune disorder [Unknown]
  - Sjogren^s syndrome [Recovered/Resolved]
  - Joint swelling [Unknown]
  - Chronic fatigue syndrome [Unknown]
  - Fibromyalgia [Unknown]
  - Exostosis [Unknown]
  - Peripheral swelling [Unknown]
  - Sinusitis [Unknown]
  - Arthralgia [Unknown]
  - Malaise [Unknown]
  - Injection site bruising [Unknown]
  - Nasopharyngitis [Unknown]
  - Post procedural swelling [Recovering/Resolving]
  - Osteoporosis [Unknown]
  - Eye infection [Unknown]
  - Inflammation [Unknown]
  - Sinus disorder [Unknown]
  - Nasal crusting [Recovering/Resolving]
  - Fall [Unknown]
  - Head injury [Unknown]
  - Sensitivity to weather change [Unknown]
  - Depressed mood [Unknown]
  - Pain [Unknown]
  - Hypotension [Unknown]
  - Headache [Unknown]
  - Fatigue [Unknown]
  - Bone pain [Unknown]
  - Dysphonia [Unknown]
  - Muscle strain [Recovering/Resolving]

NARRATIVE: CASE EVENT DATE: 20240606
